FAERS Safety Report 10206563 (Version 1)
Quarter: 2014Q2

REPORT INFORMATION
  Report Type: Spontaneous
  Country: US (occurrence: US)
  Receive Date: 20140530
  Receipt Date: 20140530
  Transmission Date: 20141212
  Serious: No
  Sender: FDA-Public Use
  Company Number: US-GLAXOSMITHKLINE-A1036908A

PATIENT
  Sex: Male
  Weight: 102 kg

DRUGS (2)
  1. FLOLAN [Suspect]
     Indication: PULMONARY ARTERIAL HYPERTENSION
     Dosage: 9NGKM CONTINUOUS
     Route: 042
     Dates: start: 20130329
  2. REVATIO [Concomitant]
     Indication: PULMONARY HYPERTENSION
     Dosage: 20MG THREE TIMES PER DAY
     Route: 048

REACTIONS (1)
  - Diarrhoea [Recovering/Resolving]
